FAERS Safety Report 7125758-2 (Version None)
Quarter: 2010Q4

REPORT INFORMATION
  Report Type: 
  Country: None (occurrence: None)
  Receive Date: 20101129
  Receipt Date: 20101116
  Transmission Date: 20110411
  Serious: Yes (Hospitalization)
  Sender: FDA-Public Use
  Company Number: B0684693A

PATIENT
  Age: 81 Year
  Sex: Female

DRUGS (5)
  1. ALKERAN [Suspect]
     Route: 065
     Dates: start: 20091010
  2. PREDNISONE [Concomitant]
     Route: 065
  3. ALDALIX [Concomitant]
     Route: 048
  4. ARICEPT [Concomitant]
     Route: 048
  5. MEDIATOR [Concomitant]
     Route: 065

REACTIONS (9)
  - ANAEMIA [None]
  - BONE MARROW FAILURE [None]
  - DEHYDRATION [None]
  - GENERAL PHYSICAL HEALTH DETERIORATION [None]
  - HYPOTENSION [None]
  - NEUTROPENIA [None]
  - RECTAL HAEMORRHAGE [None]
  - RENAL FAILURE [None]
  - THROMBOCYTOPENIA [None]
